FAERS Safety Report 5123414-3 (Version None)
Quarter: 2006Q4

REPORT INFORMATION
  Report Type: 
  Country: None (occurrence: None)
  Receive Date: 20061005
  Receipt Date: 20060922
  Transmission Date: 20070319
  Serious: Yes (Other)
  Sender: FDA-Public Use
  Company Number: 2006117126

PATIENT
  Age: 72 Year
  Sex: Female

DRUGS (4)
  1. LYRICA (PREGABAIN) [Suspect]
     Indication: POST HERPETIC NEURALGIA
     Dates: end: 20060901
  2. COUMADIN [Concomitant]
  3. INSULIN (INSULIN) [Concomitant]
  4. SECTRAL [Concomitant]

REACTIONS (1)
  - INTERNATIONAL NORMALISED RATIO DECREASED [None]
